FAERS Safety Report 9291384 (Version 1)
Quarter: 2013Q2

REPORT INFORMATION
  Report Type: Spontaneous
  Country: US (occurrence: US)
  Receive Date: 20130515
  Receipt Date: 20130515
  Transmission Date: 20140414
  Serious: No
  Sender: FDA-Public Use
  Company Number: US-BAUSCH-BL-2013-000643

PATIENT
  Sex: Female

DRUGS (3)
  1. BROMDAY 0.09% [Suspect]
     Indication: CATARACT OPERATION
     Route: 047
     Dates: start: 201206, end: 20120725
  2. PREDNISOLONE ACETATE [Suspect]
     Indication: CATARACT OPERATION
     Route: 047
     Dates: start: 201206, end: 20120712
  3. ZYMAXID [Suspect]
     Indication: CATARACT OPERATION
     Route: 047
     Dates: start: 201206, end: 20120704

REACTIONS (1)
  - Skin disorder [Not Recovered/Not Resolved]
